FAERS Safety Report 5653928-9 (Version None)
Quarter: 2008Q1

REPORT INFORMATION
  Report Type: 
  Country: None (occurrence: None)
  Receive Date: 20080306
  Receipt Date: 20080303
  Transmission Date: 20080703
  Serious: Yes (Other)
  Sender: FDA-Public Use
  Company Number: CO-PFIZER INC-2008019565

PATIENT
  Sex: Female

DRUGS (1)
  1. GENOTROPIN [Suspect]
     Route: 058

REACTIONS (1)
  - LOSS OF CONSCIOUSNESS [None]
